FAERS Safety Report 6111380-3 (Version None)
Quarter: 2009Q1

REPORT INFORMATION
  Report Type: 
  Country: None (occurrence: None)
  Receive Date: 20090311
  Receipt Date: 20090306
  Transmission Date: 20090719
  Serious: Yes (Other)
  Sender: FDA-Public Use
  Company Number: B0561991A

PATIENT
  Age: 45 Year
  Sex: Female

DRUGS (2)
  1. PAXIL [Suspect]
     Indication: DEPRESSION
     Dosage: 20MG PER DAY
     Route: 048
     Dates: start: 20080414, end: 20080630
  2. PAXIL [Suspect]
     Indication: DRUG USE FOR UNKNOWN INDICATION
     Route: 048
     Dates: start: 20090223, end: 20090223

REACTIONS (4)
  - ALTERED STATE OF CONSCIOUSNESS [None]
  - HYPOPHAGIA [None]
  - INTENTIONAL OVERDOSE [None]
  - SUICIDE ATTEMPT [None]
